FAERS Safety Report 8806696 (Version 1)
Quarter: 2012Q4

REPORT INFORMATION
  Report Type: Spontaneous
  Country: JP (occurrence: None)
  Receive Date: 20120919
  Receipt Date: 20120919
  Transmission Date: 20130627
  Serious: Yes (Other)
  Sender: FDA-Public Use
  Company Number: FK201202679

PATIENT
  Age: 69 Year
  Sex: Male

DRUGS (2)
  1. OXALIPLATIN [Suspect]
     Indication: COLORECTAL CANCER
  2. GIMERACIL/OTERACIL POTASSIUM/TEGAFUR [Suspect]

REACTIONS (1)
  - Hyperammonaemic encephalopathy [None]
